FAERS Safety Report 12236588 (Version 1)
Quarter: 2016Q2

REPORT INFORMATION
  Report Type: Spontaneous
  Country: ES (occurrence: ES)
  Receive Date: 20160405
  Receipt Date: 20160405
  Transmission Date: 20160815
  Serious: Yes (Other)
  Sender: FDA-Public Use
  Company Number: ES-ALLERGAN-1650753US

PATIENT
  Age: 7 Decade
  Sex: Male

DRUGS (1)
  1. OZURDEX [Suspect]
     Active Substance: DEXAMETHASONE
     Indication: CYSTOID MACULAR OEDEMA
     Dosage: 0.7 MG, SINGLE
     Route: 031

REACTIONS (9)
  - Device dislocation [Unknown]
  - Corneal oedema [Unknown]
  - Visual acuity reduced [Unknown]
  - Conjunctival hyperaemia [Unknown]
  - Corneal decompensation [Unknown]
  - Off label use [Unknown]
  - Intraocular pressure increased [Unknown]
  - Eye pain [Unknown]
  - Corneal disorder [Unknown]
